FAERS Safety Report 9296153 (Version 5)
Quarter: 2014Q2

REPORT INFORMATION
  Report Type: Spontaneous
  Country: US (occurrence: US)
  Receive Date: 20130517
  Receipt Date: 20140527
  Transmission Date: 20141212
  Serious: Yes (Hospitalization)
  Sender: FDA-Public Use
  Company Number: US-GLAXOSMITHKLINE-A0762220A

PATIENT
  Age: 46 Year
  Sex: Male
  Weight: 163.2 kg

DRUGS (9)
  1. AVANDIA [Suspect]
     Indication: DIABETES MELLITUS
     Dosage: 4MG TWICE PER DAY
     Route: 048
     Dates: start: 200210, end: 200704
  2. LASIX [Concomitant]
  3. QUINAPRIL [Concomitant]
  4. POTASSIUM [Concomitant]
  5. CLONIDINE [Concomitant]
  6. GLIPIZIDE [Concomitant]
  7. NIFEDIPINE [Concomitant]
  8. METOPROLOL [Concomitant]
  9. VOLTAREN [Concomitant]

REACTIONS (4)
  - Cardiac failure congestive [Not Recovered/Not Resolved]
  - Myocardial ischaemia [Unknown]
  - Acute myocardial infarction [Unknown]
  - Cardiomyopathy [Unknown]
